FAERS Safety Report 9166871 (Version 3)
Quarter: 2013Q2

REPORT INFORMATION
  Report Type: Spontaneous
  Country: JP (occurrence: JP)
  Receive Date: 20130316
  Receipt Date: 20130402
  Transmission Date: 20140414
  Serious: Yes (Other)
  Sender: FDA-Public Use
  Company Number: JP-AMGEN-JPNSP2013017333

PATIENT
  Age: 68 Year
  Sex: Female
  Weight: 37.5 kg

DRUGS (3)
  1. ARANESP [Suspect]
     Indication: NEPHROGENIC ANAEMIA
     Dosage: 60 MUG, QWK
     Route: 040
     Dates: start: 201201
  2. EPOGIN [Concomitant]
  3. FESIN [Concomitant]
     Dosage: UNK
     Route: 065

REACTIONS (1)
  - Aplasia pure red cell [Not Recovered/Not Resolved]
